FAERS Safety Report 5302019-5 (Version None)
Quarter: 2007Q2

REPORT INFORMATION
  Report Type: 
  Country: None (occurrence: None)
  Receive Date: 20070416
  Receipt Date: 20070416
  Transmission Date: 20071010
  Serious: Yes (Hospitalization)
  Sender: FDA-Public Use
  Company Number: None

PATIENT

DRUGS (2)
  1. THEOPHYLLINE [Suspect]
     Dosage: UNKNOWN   PO
     Route: 048
  2. CIMETIDINE HCL [Suspect]
     Dosage: UNKNOWN   PO
     Route: 048

REACTIONS (4)
  - HYPOKALAEMIA [None]
  - NAUSEA [None]
  - VENTRICULAR TACHYCARDIA [None]
  - VOMITING [None]
